FAERS Safety Report 6456180-X (Version None)
Quarter: 2009Q4

REPORT INFORMATION
  Report Type: 
  Country: None (occurrence: None)
  Receive Date: 20091125
  Receipt Date: 20091120
  Transmission Date: 20100525
  Serious: Yes (Other)
  Sender: FDA-Public Use
  Company Number: IE-WYE-G04774009

PATIENT
  Age: 28 Year
  Sex: Female

DRUGS (1)
  1. VENLAFAXINE HYDROCHLORIDE [Suspect]
     Dosage: INCREASED TO 300 MG (FREQUENCY UNSPECIFIED) AND THEN INCREASED TO 375MG (FREQUENCY UNSPECIFIED)
     Route: 048

REACTIONS (2)
  - DEPRESSION [None]
  - GASTRIC BYPASS [None]
